FAERS Safety Report 5711826 (Version 3)
Quarter: 2020Q3

REPORT INFORMATION
  Report Type: Report from Study
  Country: FR (occurrence: FR)
  Receive Date: 20050111
  Receipt Date: 20060403
  Transmission Date: 20201104
  Serious: Yes (Death, Life-Threatening)
  Sender: FDA-Public Use
  Company Number: FR-JNJFOC-20050100377

PATIENT
  Age: 74 Year
  Sex: Male

DRUGS (13)
  1. REOPRO [Suspect]
     Active Substance: ABCIXIMAB
     Route: 042
  2. INSULIN NOS [Concomitant]
     Active Substance: INSULIN NOS
     Route: 058
  3. AMLOR [Concomitant]
     Active Substance: AMLODIPINE BESYLATE
  4. TAHOR [Concomitant]
     Active Substance: ATORVASTATIN CALCIUM
  5. LOXEN (NICARDIPINE HYDROCHLORIDE) [Concomitant]
     Active Substance: NICARDIPINE HYDROCHLORIDE
     Route: 042
  6. INSULATARD NPH HUMAN [Concomitant]
     Active Substance: INSULIN HUMAN
  7. REOPRO [Suspect]
     Active Substance: ABCIXIMAB
     Route: 042
  8. OMEPRAZOLE. [Concomitant]
     Active Substance: OMEPRAZOLE
     Route: 042
  9. APROVEL [Concomitant]
     Active Substance: IRBESARTAN
  10. PARACETAMOL [Concomitant]
     Active Substance: ACETAMINOPHEN
     Route: 042
  11. PLAVIX [Concomitant]
     Active Substance: CLOPIDOGREL BISULFATE
     Indication: ANTICOAGULANT THERAPY
  12. ATARAX [Concomitant]
     Active Substance: HYDROXYZINE HYDROCHLORIDE
     Route: 042
  13. PRIMPERAN [Concomitant]
     Active Substance: METOCLOPRAMIDE HYDROCHLORIDE
     Route: 042

REACTIONS (1)
  - Haemorrhagic transformation stroke [Fatal]

NARRATIVE: CASE EVENT DATE: 20050101
